FAERS Safety Report 18753089 (Version 1)
Quarter: 2021Q1

REPORT INFORMATION
  Report Type: Spontaneous
  Country: PL (occurrence: PL)
  Receive Date: 20210118
  Receipt Date: 20210118
  Transmission Date: 20210419
  Serious: Yes (Hospitalization)
  Sender: FDA-Public Use
  Company Number: PL-VALIDUS PHARMACEUTICALS LLC-PL-2021VAL000029

PATIENT

DRUGS (2)
  1. FUROSEMIDE. [Suspect]
     Active Substance: FUROSEMIDE
     Indication: OEDEMA
     Dosage: 5 UNK, UNK
     Route: 065
  2. DEXAVEN [Suspect]
     Active Substance: DEXAMETHASONE
     Indication: OEDEMA
     Dosage: UNK
     Route: 065

REACTIONS (2)
  - Parotid gland enlargement [Unknown]
  - Lymphadenopathy [Unknown]
